FAERS Safety Report 5469582-5 (Version None)
Quarter: 2007Q3

REPORT INFORMATION
  Report Type: 
  Country: None (occurrence: None)
  Receive Date: 20070925
  Receipt Date: 20070925
  Transmission Date: 20080115
  Serious: Yes (Death)
  Sender: FDA-Public Use
  Company Number: None

PATIENT
  Age: 42 Year
  Sex: Male
  Weight: 63.5036 kg

DRUGS (3)
  1. METHADONE HCL [Suspect]
     Indication: HIP FRACTURE
     Dosage: 130MG  DAILY 5AM  PO
     Route: 048
     Dates: start: 20010201, end: 20030413
  2. METHADONE HCL [Suspect]
     Indication: OSTEONECROSIS
     Dosage: 130MG  DAILY 5AM  PO
     Route: 048
     Dates: start: 20010201, end: 20030413
  3. METHADONE HCL [Suspect]
     Indication: PAIN
     Dosage: 130MG  DAILY 5AM  PO
     Route: 048
     Dates: start: 20010201, end: 20030413

REACTIONS (4)
  - ACCIDENT [None]
  - DRUG TOXICITY [None]
  - RESPIRATORY FAILURE [None]
  - SOMNOLENCE [None]
